FAERS Safety Report 23923041 (Version 1)
Quarter: 2024Q2

REPORT INFORMATION
  Report Type: Report from Study
  Country: BR (occurrence: BR)
  Receive Date: 20240531
  Receipt Date: 20240531
  Transmission Date: 20240716
  Serious: Yes (Other)
  Sender: FDA-Public Use
  Company Number: BR-CELLTRION INC.-2024BR012259

PATIENT

DRUGS (8)
  1. INFLIXIMAB [Suspect]
     Active Substance: INFLIXIMAB
     Indication: Crohn^s disease
     Dosage: 6 AMPOULES EVERY 2 MONTHS
     Route: 042
     Dates: start: 20231207
  2. CODEINE [Concomitant]
     Active Substance: CODEINE
     Indication: Pain
     Dosage: 5 ML / OVER 4 YEARS
     Route: 048
  3. TRAMADOL [Concomitant]
     Active Substance: TRAMADOL\TRAMADOL HYDROCHLORIDE
     Indication: Pain
     Dosage: 5 PILLS A DAY / 2 MONTHS
     Route: 048
  4. CLONAZEPAM [Concomitant]
     Active Substance: CLONAZEPAM
     Indication: Sleep disorder
     Dosage: 2 PILLS A DAY / 6 YEARS
     Route: 048
  5. HALOPERIDOL [Concomitant]
     Active Substance: HALOPERIDOL
     Indication: Product used for unknown indication
     Dosage: 2 PILLS A DAY / 1 MONTH
     Route: 048
  6. CYCLOBENZAPRINE [Concomitant]
     Active Substance: CYCLOBENZAPRINE
     Indication: Sleep disorder
     Dosage: 2 PILLS A DAY / 2 YEARS
     Route: 048
  7. DULOXETINE [Concomitant]
     Active Substance: DULOXETINE
     Indication: Depression
     Dosage: 1 PILL A DAY / 8 YEARS
     Route: 048
  8. OLOPATADINE [Concomitant]
     Active Substance: OLOPATADINE
     Indication: Conjunctivitis
     Dosage: 1 DROP A DAY, PERIOCULAR / 20 YEARS

REACTIONS (11)
  - Crohn^s disease [Unknown]
  - Fistula [Unknown]
  - Dengue fever [Recovered/Resolved]
  - Adverse event [Unknown]
  - Infection [Unknown]
  - Drug hypersensitivity [Recovered/Resolved]
  - Psoriasis [Unknown]
  - Pain [Unknown]
  - Pruritus [Unknown]
  - Drug ineffective [Unknown]
  - Intentional dose omission [Unknown]

NARRATIVE: CASE EVENT DATE: 20240515
